FAERS Safety Report 16025457 (Version 1)
Quarter: 2019Q1

REPORT INFORMATION
  Report Type: Spontaneous
  Country: ES (occurrence: ES)
  Receive Date: 20190302
  Receipt Date: 20190302
  Transmission Date: 20190418
  Serious: Yes (Other)
  Sender: FDA-Public Use
  Company Number: ES-AUROBINDO-AUR-APL-2018-014987

PATIENT

DRUGS (3)
  1. AMOXICILLIN+CLAVULANIC ACID [Suspect]
     Active Substance: AMOXICILLIN\CLAVULANIC ACID
     Indication: NASOPHARYNGITIS
     Dosage: UNK
     Route: 065
  2. BISOLGRIP (ACETAMINOPHEN\CHLORPHENIRAMINE\PHENYLEPHRINE) [Suspect]
     Active Substance: ACETAMINOPHEN\CHLORPHENIRAMINE\PHENYLEPHRINE HYDROCHLORIDE\SODIUM BICARBONATE
     Indication: NASOPHARYNGITIS
     Dosage: UNK
     Route: 065
  3. BISOLVON ANTITUSIVO COMPOSITUM [Suspect]
     Active Substance: DEXTROMETHORPHAN\DIPHENHYDRAMINE
     Indication: NASOPHARYNGITIS
     Dosage: UNK
     Route: 048

REACTIONS (4)
  - Rash generalised [Recovered/Resolved]
  - Vomiting [Recovered/Resolved]
  - Hypersensitivity [Recovered/Resolved]
  - Choking [Recovered/Resolved]
